FAERS Safety Report 13790591 (Version 1)
Quarter: 2017Q3

REPORT INFORMATION
  Report Type: Report from Study
  Country: AO (occurrence: AO)
  Receive Date: 20170725
  Receipt Date: 20170725
  Transmission Date: 20171127
  Serious: Yes (Other)
  Sender: FDA-Public Use
  Company Number: AO-VIIV HEALTHCARE LIMITED-AO2017114325

PATIENT
  Age: 8 Year
  Sex: Female

DRUGS (3)
  1. LAMIVUDINE. [Suspect]
     Active Substance: LAMIVUDINE
     Indication: ANTIRETROVIRAL THERAPY
     Dosage: FIRST LINE CHEMOTHERAPY
     Route: 065
  2. ZIDOVUDINE. [Suspect]
     Active Substance: ZIDOVUDINE
     Indication: ANTIRETROVIRAL THERAPY
     Dosage: FIRST LINE CHEMOTHERAPY
     Route: 065
  3. NEVIRAPINE. [Suspect]
     Active Substance: NEVIRAPINE
     Indication: ANTIRETROVIRAL THERAPY
     Dosage: FIRST LINE CHEMOTHERAPY
     Route: 065

REACTIONS (3)
  - Genotype drug resistance test positive [Unknown]
  - Treatment failure [Unknown]
  - Virologic failure [Unknown]
